FAERS Safety Report 7320838-0 (Version None)
Quarter: 2011Q1

REPORT INFORMATION
  Report Type: 
  Country: None (occurrence: None)
  Receive Date: 20110121
  Receipt Date: 20100609
  Transmission Date: 20110831
  Serious: Yes (Other)
  Sender: FDA-Public Use
  Company Number: SOLV00210003054

PATIENT
  Age: 51 Year
  Sex: Female

DRUGS (3)
  1. PLACEBO [Suspect]
     Indication: OESTROGEN REPLACEMENT THERAPY
  2. PROMETRIUM [Suspect]
     Indication: OESTROGEN REPLACEMENT THERAPY
     Dosage: 200 MG FIRST 12 DAYS OF THE MONTH
  3. CLIMARA [Suspect]
     Indication: OESTROGEN REPLACEMENT THERAPY
     Dosage: DAILY TRANSCUTANEOUS

REACTIONS (4)
  - PATHOLOGICAL FRACTURE [None]
  - METASTASES TO SPINE [None]
  - BREAST CANCER STAGE IV [None]
  - FALL [None]
